FAERS Safety Report 11295564 (Version 1)
Quarter: 2015Q3

REPORT INFORMATION
  Report Type: Spontaneous
  Country: US (occurrence: US)
  Receive Date: 20150722
  Receipt Date: 20150722
  Transmission Date: 20151125
  Serious: No
  Sender: FDA-Public Use
  Company Number: US-ELI_LILLY_AND_COMPANY-US200903002624

PATIENT
  Sex: Female

DRUGS (1)
  1. EVISTA [Suspect]
     Active Substance: RALOXIFENE HYDROCHLORIDE
     Dosage: UNK, UNKNOWN
     Route: 065

REACTIONS (8)
  - Toothache [Unknown]
  - Influenza like illness [Unknown]
  - Headache [Unknown]
  - Vision blurred [Unknown]
  - Pain [Unknown]
  - Malaise [Unknown]
  - Nausea [Unknown]
  - Eye irritation [Unknown]
